FAERS Safety Report 9557492 (Version 1)
Quarter: 2013Q3

REPORT INFORMATION
  Report Type: Spontaneous
  Country: US (occurrence: None)
  Receive Date: 20130724
  Receipt Date: 20130724
  Transmission Date: 20140515
  Serious: Yes (Other)
  Sender: FDA-Public Use
  Company Number: PHEH2013US006497

PATIENT
  Age: 36 Year
  Sex: Female

DRUGS (9)
  1. GILENYA (FINGOLIMOD) CAPSULE, 0.5MG [Suspect]
     Route: 048
  2. AMPYRA (FAMPRIDINE) TABLET, 10MG [Concomitant]
  3. BACLOFEN [Concomitant]
  4. DANTROLENE [Concomitant]
  5. ZOLOFT (SERTRALINE HYDROCHLORIDE) [Concomitant]
  6. AMBIEN (ZOLPIDEM TARTRATE) [Concomitant]
  7. VITAMIN D3 (COLECALCIFEROL) [Concomitant]
  8. ORTHO EVRA (ETHINYLESTRADIOL, NORELGESTROMIN) [Concomitant]
  9. GABANTIN (GABAPENTIN) [Concomitant]

REACTIONS (2)
  - Product physical issue [None]
  - Incorrect dose administered [None]
